FAERS Safety Report 9869920 (Version 1)
Quarter: 2014Q1

REPORT INFORMATION
  Report Type: Spontaneous
  Country: US (occurrence: None)
  Receive Date: 20140203
  Receipt Date: 20140203
  Transmission Date: 20141002
  Serious: Yes (Other)
  Sender: FDA-Public Use
  Company Number: 001659134A

PATIENT
  Age: 34 Year
  Sex: Female

DRUGS (2)
  1. X-OUT CLEANSING BODY BAR [Suspect]
     Indication: ACNE
     Dosage: ONCE DERMAL
     Dates: start: 20140108
  2. X-OUT WASH-IN TREATMENT [Suspect]
     Indication: ACNE
     Dosage: ONCE DERMAL
     Dates: start: 20140108

REACTIONS (3)
  - Abdominal pain [None]
  - Urticaria [None]
  - Pruritus [None]
